FAERS Safety Report 7928106-0 (Version None)
Quarter: 2011Q4

REPORT INFORMATION
  Report Type: 
  Country: None (occurrence: None)
  Receive Date: 20111118
  Receipt Date: 20111024
  Transmission Date: 20120403
  Serious: Yes (Other)
  Sender: FDA-Public Use
  Company Number: DE-GLAXOSMITHKLINE-D0073138A

PATIENT
  Sex: Male
  Weight: 32 kg

DRUGS (2)
  1. LAMICTAL [Suspect]
     Indication: MYOCLONIC EPILEPSY
     Dosage: 250MG TWICE PER DAY
     Route: 048
     Dates: start: 20050501
  2. ETHOSUXIMIDE [Concomitant]
     Dosage: 600MG PER DAY
     Route: 065
     Dates: start: 20050501

REACTIONS (4)
  - ANTICONVULSANT DRUG LEVEL DECREASED [None]
  - CONVULSION [None]
  - FOOD INTERACTION [None]
  - PARTIAL SEIZURES [None]
